FAERS Safety Report 15043630 (Version 2)
Quarter: 2018Q2

REPORT INFORMATION
  Report Type: Report from Study
  Country: None (occurrence: US)
  Receive Date: 20180621
  Receipt Date: 20180622
  Transmission Date: 20180711
  Serious: No
  Sender: FDA-Public Use
  Company Number: US-ABBVIE-18K-163-2364162-00

PATIENT
  Age: 19 Year
  Sex: Male
  Weight: 60.38 kg

DRUGS (2)
  1. HUMIRA [Suspect]
     Active Substance: ADALIMUMAB
     Indication: CROHN^S DISEASE
     Dosage: LOADING DOSE
     Route: 058
     Dates: start: 201804, end: 201804
  2. HUMIRA [Suspect]
     Active Substance: ADALIMUMAB
     Route: 058
     Dates: start: 20180601, end: 20180601

REACTIONS (1)
  - Procedural pain [Recovering/Resolving]

NARRATIVE: CASE EVENT DATE: 201805
